FAERS Safety Report 6090109-1 (Version None)
Quarter: 2009Q1

REPORT INFORMATION
  Report Type: 
  Country: None (occurrence: None)
  Receive Date: 20090224
  Receipt Date: 20081204
  Transmission Date: 20090719
  Serious: No
  Sender: FDA-Public Use
  Company Number: US-ABBOTT-08P-163-0491536-00

PATIENT
  Sex: Female

DRUGS (3)
  1. SIMCOR [Suspect]
     Indication: DRUG USE FOR UNKNOWN INDICATION
     Dosage: 500/20 MG AT HS
     Dates: start: 20081101
  2. ASPIRIN [Concomitant]
     Indication: DRUG USE FOR UNKNOWN INDICATION
  3. UNKNOWN LOCAL INJECTION [Concomitant]
     Indication: ARTHRALGIA
     Route: 050

REACTIONS (3)
  - FLUSHING [None]
  - NAUSEA [None]
  - SKIN BURNING SENSATION [None]
